FAERS Safety Report 15683603 (Version 2)
Quarter: 2018Q4

REPORT INFORMATION
  Report Type: Report from Study
  Country: US (occurrence: US)
  Receive Date: 20181204
  Receipt Date: 20181214
  Transmission Date: 20190205
  Serious: Yes (Hospitalization, Other)
  Sender: FDA-Public Use
  Company Number: US-BRISTOL-MYERS SQUIBB COMPANY-BMS-2018-112725

PATIENT
  Age: 40 Year
  Sex: Female
  Weight: 89.7 kg

DRUGS (2)
  1. NIVOLUMAB [Suspect]
     Active Substance: NIVOLUMAB
     Indication: CHOLANGIOCARCINOMA
     Dosage: UNK UNK, Q2WK
     Route: 065
     Dates: start: 20181113
  2. ENTINOSTAT [Suspect]
     Active Substance: ENTINOSTAT
     Indication: CHOLANGIOCARCINOMA
     Dosage: UNK UNK, QWK
     Route: 065
     Dates: start: 20181030

REACTIONS (4)
  - Metastases to liver [Unknown]
  - Pulmonary embolism [Unknown]
  - Liver function test increased [Unknown]
  - Pancytopenia [Unknown]

NARRATIVE: CASE EVENT DATE: 20181123
